FAERS Safety Report 5952680-7 (Version None)
Quarter: 2008Q4

REPORT INFORMATION
  Report Type: 
  Country: None (occurrence: None)
  Receive Date: 20081114
  Receipt Date: 20081031
  Transmission Date: 20090506
  Serious: Yes (Other)
  Sender: FDA-Public Use
  Company Number: DE-RANBAXY-2008RR-19039

PATIENT
  Age: 85 Year
  Sex: Female

DRUGS (1)
  1. IBUPROFEN TABLETS [Suspect]

REACTIONS (1)
  - PLATELET AGGREGATION [None]
